FAERS Safety Report 4687235-8 (Version None)
Quarter: 2005Q2

REPORT INFORMATION
  Report Type: 
  Country: None (occurrence: None)
  Receive Date: 20050606
  Receipt Date: 20050525
  Transmission Date: 20051028
  Serious: Yes (Death, Other)
  Sender: FDA-Public Use
  Company Number: 200511715GDS

PATIENT
  Age: 77 Year
  Sex: Female

DRUGS (2)
  1. CIPROFLOXACIN [Suspect]
     Indication: URINARY TRACT INFECTION
  2. WARFARIN SODIUM [Concomitant]

REACTIONS (12)
  - ASCITES [None]
  - CEREBRAL HAEMORRHAGE [None]
  - COAGULATION FACTOR XIII LEVEL DECREASED [None]
  - DEEP VEIN THROMBOSIS [None]
  - FACTOR XIII INHIBITION [None]
  - GASTRIC ULCER HAEMORRHAGE [None]
  - HAEMATEMESIS [None]
  - HAEMATOMA [None]
  - HAEMOGLOBIN DECREASED [None]
  - JUGULAR VEIN THROMBOSIS [None]
  - THROMBOCYTHAEMIA [None]
  - THROMBOSIS [None]
